FAERS Safety Report 6156114-1 (Version None)
Quarter: 2009Q2

REPORT INFORMATION
  Report Type: 
  Country: None (occurrence: None)
  Receive Date: 20090415
  Receipt Date: 20090403
  Transmission Date: 20091009
  Serious: Yes (Hospitalization, Other)
  Sender: FDA-Public Use
  Company Number: CA-GENENTECH-280918

PATIENT
  Sex: Male

DRUGS (1)
  1. OMALIZUMAB [Suspect]
     Indication: ASTHMA
     Dosage: 220 MG, 2/WEEK
     Route: 058
     Dates: start: 20080130

REACTIONS (2)
  - BLOOD PRESSURE INCREASED [None]
  - PANCREATITIS [None]
